FAERS Safety Report 5081029-X (Version None)
Quarter: 2006Q3

REPORT INFORMATION
  Report Type: 
  Country: None (occurrence: None)
  Receive Date: 20060810
  Receipt Date: 20060728
  Transmission Date: 20061208
  Serious: Yes (Other)
  Sender: FDA-Public Use
  Company Number: 2006094356

PATIENT
  Age: 79 Year
  Sex: Female

DRUGS (6)
  1. CELEBREX [Suspect]
     Indication: ARTHRITIS
     Dosage: 200 MG (200 MG, 1 IN 1 D)
  2. GLUCOSAMINE             (GLUCOSAMINE) [Concomitant]
  3. WARFARIN SODIUM [Concomitant]
  4. ATACAND PLUS               (CANDESARTAN CILEXETIL, HYDROCHLOROTHIAZIDE [Concomitant]
  5. CARDIAC THERAPY   (CARDIAC THERAPY) [Concomitant]
  6. OMEGA-3         (OMEGA-3 TRIGLYCERIDES) [Concomitant]

REACTIONS (1)
  - INTERNATIONAL NORMALISED RATIO DECREASED [None]
